FAERS Safety Report 23573881 (Version 2)
Quarter: 2024Q3

REPORT INFORMATION
  Report Type: Report from Study
  Country: US (occurrence: US)
  Receive Date: 20240228
  Receipt Date: 20240710
  Transmission Date: 20241016
  Serious: No
  Sender: ROCHE
  Company Number: US-ROCHE-3513112

PATIENT
  Age: 45 Year
  Sex: Female
  Weight: 82.55 kg

DRUGS (24)
  1. OCREVUS [Suspect]
     Active Substance: OCRELIZUMAB
     Indication: Relapsing-remitting multiple sclerosis
     Route: 042
     Dates: start: 202201
  2. ACYCLOVIR [Concomitant]
     Active Substance: ACYCLOVIR
     Indication: Herpes zoster
     Route: 048
  3. LEVOTHYROXINE [Concomitant]
     Active Substance: LEVOTHYROXINE\LEVOTHYROXINE SODIUM
     Route: 048
  4. TOPIRAMATE [Concomitant]
     Active Substance: TOPIRAMATE
     Indication: Headache
     Dosage: 1/2 IN THE MORNING 1/2 AT NIGHT
     Route: 048
  5. HYDROCHLOROTHIAZIDE [Concomitant]
     Active Substance: HYDROCHLOROTHIAZIDE
     Route: 048
  6. PANTOPRAZOLE [Concomitant]
     Active Substance: PANTOPRAZOLE
     Route: 048
  7. VENLAFAXINE [Concomitant]
     Active Substance: VENLAFAXINE HYDROCHLORIDE
     Route: 048
  8. SUMATRIPTAN [Concomitant]
     Active Substance: SUMATRIPTAN
     Route: 048
  9. METHENAMINE [Concomitant]
     Active Substance: METHENAMINE
     Indication: Urinary tract infection
     Route: 048
     Dates: start: 202403
  10. MAGNESIUM [Concomitant]
     Active Substance: MAGNESIUM
     Route: 048
  11. BIOTIN [Concomitant]
     Active Substance: BIOTIN
     Indication: Multiple sclerosis
     Route: 048
  12. BIOTIN [Concomitant]
     Active Substance: BIOTIN
     Route: 048
  13. VITAMIN D3 [Concomitant]
     Active Substance: CHOLECALCIFEROL
     Route: 048
  14. K DUR [Concomitant]
     Indication: Blood potassium
     Route: 048
  15. HERBALS\TURMERIC [Concomitant]
     Active Substance: HERBALS\TURMERIC
  16. BIOTINE [Concomitant]
  17. CRANBERRY [Concomitant]
     Active Substance: CRANBERRY
  18. TOPRAMAC [Concomitant]
     Indication: Headache
     Dosage: 1/2 IN THE MORNING 1/2 AT NIGHT
     Route: 048
  19. MICROCIDE [Concomitant]
     Route: 048
  20. PROTONIX [Concomitant]
     Active Substance: PANTOPRAZOLE SODIUM
     Indication: Gastrooesophageal reflux disease
     Route: 048
  21. SYNTHROID [Concomitant]
     Active Substance: LEVOTHYROXINE SODIUM
     Indication: Graves^ disease
     Dosage: EVERY MORNING AT 5 O CLOCK
     Route: 048
     Dates: start: 202007
  22. EFFEXOR [Concomitant]
     Active Substance: VENLAFAXINE HYDROCHLORIDE
     Indication: Anxiety
     Dosage: OVER 7 YEARS
     Route: 048
  23. EFFEXOR [Concomitant]
     Active Substance: VENLAFAXINE HYDROCHLORIDE
     Indication: Depression
  24. ZOLPIDEM [Concomitant]
     Active Substance: ZOLPIDEM TARTRATE
     Dosage: EVERY 1 AT NIGHT
     Route: 048

REACTIONS (9)
  - Off label use [Unknown]
  - Herpes zoster [Recovered/Resolved]
  - Pain [Recovered/Resolved]
  - Scar [Not Recovered/Not Resolved]
  - Respiratory tract infection [Not Recovered/Not Resolved]
  - Cough [Not Recovered/Not Resolved]
  - Throat irritation [Recovered/Resolved]
  - Rhinorrhoea [Not Recovered/Not Resolved]
  - Urinary tract infection [Not Recovered/Not Resolved]

NARRATIVE: CASE EVENT DATE: 20220101
